FAERS Safety Report 23399303 (Version 1)
Quarter: 2024Q1

REPORT INFORMATION
  Report Type: Spontaneous
  Country: US (occurrence: US)
  Receive Date: 20240113
  Receipt Date: 20240113
  Transmission Date: 20240409
  Serious: Yes (Other)
  Sender: FDA-Public Use
  Company Number: US-AMGEN-USASP2024005638

PATIENT
  Age: 22 Year
  Sex: Female

DRUGS (2)
  1. BLINCYTO [Suspect]
     Active Substance: BLINATUMOMAB
     Indication: B precursor type acute leukaemia
     Dosage: 28 MICROGRAM/SQ. METER, CONTINUING (CONTINUOUS INTRAVENOUS (CIV))
     Route: 042
  2. BLINCYTO [Suspect]
     Active Substance: BLINATUMOMAB
     Dosage: UNK, DOSE REDUCED
     Route: 042

REACTIONS (1)
  - Neurotoxicity [Recovered/Resolved]
